FAERS Safety Report 15150641 (Version 1)
Quarter: 2018Q3

REPORT INFORMATION
  Report Type: Spontaneous
  Country: FR (occurrence: FR)
  Receive Date: 20180716
  Receipt Date: 20180716
  Transmission Date: 20181010
  Serious: Yes (Death, Life-Threatening, Hospitalization, Other)
  Sender: FDA-Public Use
  Company Number: FR-BRISTOL-MYERS SQUIBB COMPANY-BMS-2018-064169

PATIENT
  Age: 86 Year
  Sex: Female

DRUGS (1)
  1. ELIQUIS [Suspect]
     Active Substance: APIXABAN
     Indication: DEEP VEIN THROMBOSIS
     Dosage: 5 MG, DAILY
     Route: 048
     Dates: start: 2007, end: 20180506

REACTIONS (3)
  - Subdural haematoma [Fatal]
  - Prescribed underdose [Unknown]
  - Cerebral haematoma [Fatal]

NARRATIVE: CASE EVENT DATE: 20180506
